FAERS Safety Report 24728489 (Version 1)
Quarter: 2024Q4

REPORT INFORMATION
  Report Type: Spontaneous
  Country: GB (occurrence: GB)
  Receive Date: 20241212
  Receipt Date: 20241212
  Transmission Date: 20250114
  Serious: Yes (Hospitalization, Other)
  Sender: BAUSCH AND LOMB
  Company Number: GB-MLMSERVICE-20241125-PI270603-00039-1

PATIENT
  Age: 26 Year
  Sex: Female

DRUGS (3)
  1. ACYCLOVIR [Suspect]
     Active Substance: ACYCLOVIR
     Indication: Herpes simplex encephalitis
     Dosage: 10 MG/KG BODY WEIGHT EVERY EIGHT HOURS, RECOMMENDED DOSE, WEIGHT 72 KG, DOSE 720 MG
     Route: 040
  2. ACYCLOVIR [Suspect]
     Active Substance: ACYCLOVIR
     Dosage: AGAIN, STARTED ON 500 MG OF IV TID
     Route: 040
  3. VALPROIC ACID [Concomitant]
     Active Substance: VALPROIC ACID
     Indication: Antiplatelet therapy
     Route: 040

REACTIONS (1)
  - Acute kidney injury [Recovered/Resolved]
